FAERS Safety Report 9546920 (Version 1)
Quarter: 2013Q2

REPORT INFORMATION
  Report Type: Spontaneous
  Country: US (occurrence: None)
  Receive Date: 20130606
  Receipt Date: 20130606
  Transmission Date: 20140414
  Serious: Yes (Death)
  Sender: FDA-Public Use
  Company Number: 2013SIPUSA00016

PATIENT
  Age: 76 Year
  Sex: Male

DRUGS (25)
  1. SIPULEUCEL-T [Suspect]
     Indication: PROSTATE CANCER METASTATIC
     Route: 042
     Dates: start: 20120730, end: 20120730
  2. ABIRATERON(ABIRATERONE ACETATE) [Concomitant]
  3. PREDNISONE(PREDNISONE) [Concomitant]
  4. ZINC(ZINC) [Concomitant]
  5. SELENIUM(SELENIUM) [Concomitant]
  6. VITAMIN C(ASCORBIC ACID) [Concomitant]
  7. CHLOROPHYLL(CHLOROPHYLL) [Concomitant]
  8. IODINE(IODINE, SODIUM IODIDE) [Concomitant]
  9. VITAMIN D3(COLECALCIFEROL) [Concomitant]
  10. VITAMIN B COMPLEX(CYANOCOBALAMIN, NICOTINAMIDE, PYRIDONXINE HYDROCHLORIDE, RIBOFLAVIN, THIAMINE HYDROCHORIDE) [Concomitant]
  11. ECHINACEA(ECHINACEA PURPUREA) [Concomitant]
  12. SPIRULINA(SPIRULINA) [Concomitant]
  13. OLEA EUROPAEA LEAF EXTRACT (OLEA EUROPAEA LEAF EXTRACT) [Concomitant]
  14. CO Q10(UBIDECARENONE) [Concomitant]
  15. ADVIL (IBUPROFEN) [Concomitant]
  16. ZOLADEX(GOSERELIN ACETATE) [Concomitant]
  17. OXYCODONE/ACETAMINOPHEN(OXYCODONE HYDROCHLORIDE, PARACETAMOL) [Concomitant]
  18. HYDROMORPHONE(HYDROMORPHONE) [Concomitant]
  19. CITRATE OF MAGNESIUM [Concomitant]
  20. FENTANYL(FENTANYL CITRATE) [Concomitant]
  21. CYCLOBENZAPRIN HCL (CYCLOBENZAPRINE HYDROCHLORIDE) [Concomitant]
  22. LACTULOSE(LACTULOSE) [Concomitant]
  23. FUROSEMIDE(FUROSEMIDE) [Concomitant]
  24. POTASSIUM CHLORIDE(POTASSIUM CHLORIDE) [Concomitant]
  25. PROCHLORPERAZINE(PROCHLORPERAZINE MALEATE) [Concomitant]

REACTIONS (1)
  - Prostate cancer metastatic [None]
